FAERS Safety Report 18009214 (Version 1)
Quarter: 2020Q3

REPORT INFORMATION
  Report Type: Spontaneous
  Country: US (occurrence: US)
  Receive Date: 20200710
  Receipt Date: 20200710
  Transmission Date: 20201103
  Serious: Yes (Other)
  Sender: FDA-Public Use
  Company Number: US-SAOL THERAPEUTICS-2019SAO00481

PATIENT
  Age: 23 Year
  Sex: Female

DRUGS (2)
  1. LIORESAL [Suspect]
     Active Substance: BACLOFEN
     Indication: CEREBRAL PALSY
     Dosage: 142 ?G, \DAY
     Route: 037
  2. LIORESAL [Suspect]
     Active Substance: BACLOFEN
     Dosage: 99.94 ?G, \DAY (PER PUMP LOG AS OF LAST UPDATE ON 31?OCT?2019)
     Route: 037
     Dates: end: 20191031

REACTIONS (3)
  - Muscle spasticity [Recovered/Resolved]
  - Device failure [Recovered/Resolved]
  - Implant site extravasation [Recovering/Resolving]

NARRATIVE: CASE EVENT DATE: 201907
